FAERS Safety Report 4287921-8 (Version None)
Quarter: 2004Q1

REPORT INFORMATION
  Report Type: 
  Country: None (occurrence: None)
  Receive Date: 20040209
  Receipt Date: 20031029
  Transmission Date: 20041129
  Serious: No
  Sender: FDA-Public Use
  Company Number: US-GLAXOSMITHKLINE-A0432113A

PATIENT
  Age: 74 Year
  Sex: Female

DRUGS (4)
  1. PAXIL [Suspect]
     Indication: DEPRESSION
     Dosage: 12.5MG PER DAY
     Route: 048
     Dates: start: 20030901
  2. INFLUENZA SHOT [Suspect]
     Route: 065
  3. VICODIN [Concomitant]
  4. VALIUM [Concomitant]

REACTIONS (5)
  - DIZZINESS [None]
  - FEELING HOT AND COLD [None]
  - HYPERHIDROSIS [None]
  - NAUSEA [None]
  - VISION BLURRED [None]
